FAERS Safety Report 13391922 (Version 2)
Quarter: 2017Q2

REPORT INFORMATION
  Report Type: Report from Study
  Country: DE (occurrence: DE)
  Receive Date: 20170331
  Receipt Date: 20170410
  Transmission Date: 20170830
  Serious: Yes (Other)
  Sender: FDA-Public Use
  Company Number: DE-VERTEX PHARMACEUTICALS-2017-001677

PATIENT
  Age: 49 Year
  Sex: Male
  Weight: 75 kg

DRUGS (18)
  1. VX-770/VX-661 [Suspect]
     Active Substance: INVESTIGATIONAL PRODUCT
     Indication: CYSTIC FIBROSIS
     Dosage: 150 MG, BID
     Route: 048
     Dates: start: 20170105, end: 20170317
  2. CALCIUM 600+D3 [Concomitant]
     Active Substance: CALCIUM CARBONATE\VITAMIN D
     Indication: OSTEOPENIA
     Dosage: UNK
     Route: 048
     Dates: start: 20160103
  3. VX-661/VX-770 [Suspect]
     Active Substance: INVESTIGATIONAL PRODUCT
     Indication: CYSTIC FIBROSIS
     Dosage: 100 MG, QD
     Route: 048
     Dates: start: 20170105, end: 20170317
  4. CREON [Concomitant]
     Active Substance: PANCRELIPASE AMYLASE\PANCRELIPASE LIPASE\PANCRELIPASE PROTEASE
     Indication: PANCREATIC FAILURE
     Dosage: 25000 UT, UNK
     Route: 048
     Dates: start: 19690501
  5. TROSPIUM CHLORIDE. [Concomitant]
     Active Substance: TROSPIUM CHLORIDE
     Indication: STRANGURY
     Dosage: 15 MG, QD
     Route: 048
     Dates: start: 20161229
  6. NEUPRO [Concomitant]
     Active Substance: ROTIGOTINE
     Indication: RESTLESS LEGS SYNDROME
     Dosage: 2 MG, QD
     Route: 062
     Dates: start: 2012
  7. LEVEMIR [Concomitant]
     Active Substance: INSULIN DETEMIR
     Indication: CYSTIC FIBROSIS RELATED DIABETES
     Dosage: 5 IE QD
     Route: 058
     Dates: start: 201410
  8. VIANI [Concomitant]
     Active Substance: FLUTICASONE PROPIONATE\SALMETEROL XINAFOATE
     Dosage: 250 MG, UNK
  9. MOMETASONE [Concomitant]
     Active Substance: MOMETASONE
     Indication: SINUS DISORDER
     Dosage: 0.05 MG, BID
     Dates: start: 20110401
  10. URSOFALK [Concomitant]
     Active Substance: URSODIOL
     Indication: CYSTIC FIBROSIS HEPATIC DISEASE
     Dosage: 400 MG, UNK
     Route: 048
     Dates: start: 20150602
  11. NOVORAPID [Concomitant]
     Active Substance: INSULIN ASPART
     Indication: CYSTIC FIBROSIS RELATED DIABETES
     Dosage: UNK
     Route: 058
     Dates: start: 20121001
  12. ACETYLCYSTEINE. [Concomitant]
     Active Substance: ACETYLCYSTEINE
     Indication: CYSTIC FIBROSIS LUNG
     Dosage: 600 MG, BID
     Route: 048
     Dates: start: 1995
  13. COTRIM [Concomitant]
     Active Substance: SULFAMETHOXAZOLE\TRIMETHOPRIM
     Indication: INFECTIVE PULMONARY EXACERBATION OF CYSTIC FIBROSIS
     Dosage: 200/100/300 MG, BID
     Route: 048
     Dates: start: 20170203, end: 20170213
  14. NORTRIPTYLINE HYDROCHLORIDE. [Concomitant]
     Active Substance: NORTRIPTYLINE HYDROCHLORIDE
     Indication: DEPRESSION
     Dosage: 2.5 MG, BID
     Route: 048
     Dates: start: 20161221
  15. NACL [Concomitant]
     Active Substance: SODIUM CHLORIDE
     Indication: CYSTIC FIBROSIS LUNG
     Dosage: 4 ML, BID
     Route: 055
     Dates: start: 200001
  16. AMITRIPTYLINE [Concomitant]
     Active Substance: AMITRIPTYLINE
     Indication: DEPRESSION
     Dosage: 10 MG, QD
     Route: 048
     Dates: start: 20160503
  17. BUPROPION. [Concomitant]
     Active Substance: BUPROPION
     Indication: DEPRESSION
     Dosage: 300 MG, QD
     Route: 048
     Dates: start: 20160831
  18. TESTOSTERONE. [Concomitant]
     Active Substance: TESTOSTERONE
     Indication: ANDROGEN DEFICIENCY
     Dosage: 1000MG 1X/MONTH
     Route: 030
     Dates: start: 201505

REACTIONS (1)
  - Left ventricular dysfunction [Not Recovered/Not Resolved]

NARRATIVE: CASE EVENT DATE: 20170303
